FAERS Safety Report 9258222 (Version 3)
Quarter: 2013Q3

REPORT INFORMATION
  Report Type: Spontaneous
  Country: FR (occurrence: FR)
  Receive Date: 20130426
  Receipt Date: 20130705
  Transmission Date: 20140515
  Serious: Yes (Hospitalization, Other)
  Sender: FDA-Public Use
  Company Number: FR-GENZYME-THYM-1003765

PATIENT
  Age: 71 Year
  Sex: Male

DRUGS (1)
  1. THYMOGLOBULINE [Suspect]
     Indication: RENAL TRANSPLANT
     Dosage: 100 MG, QD
     Route: 042
     Dates: start: 20130214, end: 20130215

REACTIONS (5)
  - Hyperkalaemia [Unknown]
  - Thrombocytopenia [Recovered/Resolved]
  - Shock [Unknown]
  - Rhabdomyolysis [Unknown]
  - Peripheral ischaemia [Unknown]
